FAERS Safety Report 17545147 (Version 2)
Quarter: 2020Q2

REPORT INFORMATION
  Report Type: Report from Study
  Country: PA (occurrence: PA)
  Receive Date: 20200316
  Receipt Date: 20200402
  Transmission Date: 20200713
  Serious: Yes (Other)
  Sender: FDA-Public Use
  Company Number: PA-ROCHE-2566377

PATIENT
  Age: 51 Year
  Sex: Female

DRUGS (16)
  1. SULFASALAZINE. [Concomitant]
     Active Substance: SULFASALAZINE
     Indication: ARTHRITIS
  2. XOLAIR [Suspect]
     Active Substance: OMALIZUMAB
     Indication: ASTHMA
     Route: 058
     Dates: start: 20180921
  3. PREDNISOLONE. [Concomitant]
     Active Substance: PREDNISOLONE
     Indication: ARTHRITIS
  4. OMEPRAZOLE. [Concomitant]
     Active Substance: OMEPRAZOLE
     Indication: HIATUS HERNIA
     Route: 065
  5. INDAPAMIDE. [Concomitant]
     Active Substance: INDAPAMIDE
     Indication: HYPERTENSION
     Dosage: 1.5 MG, QD
     Route: 065
  6. MOMETASONE [Concomitant]
     Active Substance: MOMETASONE
     Indication: ASTHMA
     Dosage: UNK UNK, Q12H (1 APPLICATION IN EACH NOSTRIL) (SUSPENSION FOR NASAL PULVERIZATION)
     Route: 045
     Dates: start: 2013
  7. VERAPAMIL [Concomitant]
     Active Substance: VERAPAMIL HYDROCHLORIDE
     Indication: HYPERTENSION
     Dosage: 120 MG, BID
     Route: 065
  8. DORZOLAMIDE [Concomitant]
     Active Substance: DORZOLAMIDE
     Indication: ANGLE CLOSURE GLAUCOMA
     Dosage: 1 DRP, Q12H (1 DROP IN EACH EYE)
     Route: 047
     Dates: start: 2018
  9. TIOTROPIUM BROMIDE [Concomitant]
     Active Substance: TIOTROPIUM BROMIDE
     Indication: ASTHMA
     Dosage: 18 UG, QD
     Route: 055
     Dates: start: 2013
  10. OMEPRAZOLE. [Concomitant]
     Active Substance: OMEPRAZOLE
     Indication: GASTROOESOPHAGEAL REFLUX DISEASE
     Dosage: 20 MG, BID (2 CAPSULES 30 MINUTES BEFORE BREAKFAST AND 2 CAPSULES IN AFTERNOON, 2016 1 CAPULE IN MOR
     Route: 065
  11. GABAPENTIN. [Concomitant]
     Active Substance: GABAPENTIN
     Indication: PRODUCT USED FOR UNKNOWN INDICATION
     Dosage: 300 MG, BID (ON TABLET IN MORNING AND 2 TABLETS AT NIGHT)
     Route: 065
     Dates: start: 2010
  12. PREDNISOLONE. [Concomitant]
     Active Substance: PREDNISOLONE
     Indication: ARTHRALGIA
     Dosage: 5 MG, QD
     Route: 065
  13. BRIMONIDINE [Concomitant]
     Active Substance: BRIMONIDINE TARTRATE
     Indication: ANGLE CLOSURE GLAUCOMA
     Dosage: 1 DRP, Q12H (1 DROP IN EACH EYE)
     Route: 047
     Dates: start: 2018
  14. SULFASALAZINE. [Concomitant]
     Active Substance: SULFASALAZINE
     Indication: ARTHRALGIA
     Dosage: 500 MG, BID
     Route: 065
  15. BECLOMETHASONE [BECLOMETASONE] [Concomitant]
     Active Substance: BECLOMETHASONE
     Indication: ASTHMA
     Dosage: 4 DF, Q8H
     Route: 055
     Dates: start: 2013
  16. MONTELUKAST [Concomitant]
     Active Substance: MONTELUKAST SODIUM
     Indication: ASTHMA
     Dosage: 10 MG, QD
     Route: 065
     Dates: start: 2013

REACTIONS (8)
  - Autoimmune disorder [Not Recovered/Not Resolved]
  - Eye inflammation [Unknown]
  - Malaise [Unknown]
  - Headache [Unknown]
  - Cough [Unknown]
  - Ankylosing spondylitis [Not Recovered/Not Resolved]
  - Pyrexia [Unknown]
  - Wheezing [Unknown]
